FAERS Safety Report 14425853 (Version 1)
Quarter: 2018Q1

REPORT INFORMATION
  Report Type: Spontaneous
  Country: US (occurrence: US)
  Receive Date: 20180123
  Receipt Date: 20180123
  Transmission Date: 20180509
  Serious: Yes (Other)
  Sender: FDA-Public Use
  Company Number: US-PFIZER INC-2018024900

PATIENT

DRUGS (1)
  1. BOSULIF [Suspect]
     Active Substance: BOSUTINIB MONOHYDRATE
     Dosage: UNK

REACTIONS (6)
  - Dyspnoea [Unknown]
  - Hypertension [Unknown]
  - Dizziness [Unknown]
  - Second primary malignancy [Unknown]
  - Pleural effusion [Not Recovered/Not Resolved]
  - Chronic myeloid leukaemia [Unknown]
